FAERS Safety Report 9813056 (Version 1)
Quarter: 2014Q1

REPORT INFORMATION
  Report Type: Spontaneous
  Country: US (occurrence: None)
  Receive Date: 20140109
  Receipt Date: 20140109
  Transmission Date: 20141002
  Serious: Yes (Other)
  Sender: FDA-Public Use
  Company Number: None

PATIENT
  Age: 13 Year
  Sex: Male
  Weight: 45.36 kg

DRUGS (1)
  1. METHYLPHENIDATE ER [Suspect]
     Indication: ATTENTION DEFICIT/HYPERACTIVITY DISORDER
     Dosage: 1 PILL  EVERY MORNING  TAKEN BY MOUTH
     Route: 048
     Dates: start: 20131103, end: 20131109

REACTIONS (2)
  - Drug ineffective [None]
  - Product substitution issue [None]
